FAERS Safety Report 7228097-4 (Version None)
Quarter: 2011Q1

REPORT INFORMATION
  Report Type: 
  Country: None (occurrence: None)
  Receive Date: 20110114
  Receipt Date: 20110112
  Transmission Date: 20110831
  Serious: Yes (Life-Threatening, Hospitalization, Other)
  Sender: FDA-Public Use
  Company Number: US-CEPHALON-2010005854

PATIENT
  Age: 84 Year
  Sex: Male

DRUGS (2)
  1. TREANDA [Suspect]
     Indication: CHRONIC LYMPHOCYTIC LEUKAEMIA
     Dosage: 70 MG/M2
     Route: 042
     Dates: start: 20100827
  2. TREANDA [Suspect]
     Route: 042
     Dates: start: 20100828

REACTIONS (1)
  - ANAEMIA HAEMOLYTIC AUTOIMMUNE [None]
